FAERS Safety Report 8176243-0 (Version None)
Quarter: 2012Q1

REPORT INFORMATION
  Report Type: 
  Country: None (occurrence: None)
  Receive Date: 20120301
  Receipt Date: 20120223
  Transmission Date: 20120608
  Serious: Yes (Other)
  Sender: FDA-Public Use
  Company Number: GB-JNJFOC-20120213075

PATIENT
  Age: 4 Decade
  Sex: Male

DRUGS (1)
  1. REMICADE [Suspect]
     Indication: PSORIASIS
     Route: 042

REACTIONS (7)
  - INFUSION RELATED REACTION [None]
  - HEADACHE [None]
  - BRONCHOSPASM [None]
  - LOWER RESPIRATORY TRACT INFECTION [None]
  - C-REACTIVE PROTEIN INCREASED [None]
  - HYPERTENSION [None]
  - VOMITING [None]
